FAERS Safety Report 24421195 (Version 1)
Quarter: 2024Q4

REPORT INFORMATION
  Report Type: Spontaneous
  Country: US (occurrence: US)
  Receive Date: 20241010
  Receipt Date: 20241010
  Transmission Date: 20250115
  Serious: Yes (Other)
  Sender: BRISTOL MYERS SQUIBB
  Company Number: US-BRISTOL-MYERS SQUIBB COMPANY-2024-157061

PATIENT
  Age: 73 Year
  Sex: Male

DRUGS (9)
  1. POMALYST [Suspect]
     Active Substance: POMALIDOMIDE
     Indication: Plasma cell myeloma
     Route: 048
     Dates: start: 20240716
  2. POMALYST [Suspect]
     Active Substance: POMALIDOMIDE
  3. EMPLICITI [Concomitant]
     Active Substance: ELOTUZUMAB
     Dosage: 1 VIAL
  4. DARZALEX [Concomitant]
     Active Substance: DARATUMUMAB
     Dosage: DOSE- 400MG/20ML, 1 VIAL
  5. ZOMETA [Concomitant]
     Active Substance: ZOLEDRONIC ACID
     Dosage: DOSE- 4MG/5ML
  6. ACYCLOVIR [Concomitant]
     Active Substance: ACYCLOVIR
  7. DEXAMETHASONE [Concomitant]
     Active Substance: DEXAMETHASONE
  8. NORTRIPTYLINE [Concomitant]
     Active Substance: NORTRIPTYLINE
  9. SULFAMETHOXAZOLE\TRIMETHOPRIM [Concomitant]
     Active Substance: SULFAMETHOXAZOLE\TRIMETHOPRIM
     Dosage: DOSE- 800/160MG

REACTIONS (4)
  - Pruritus [Recovered/Resolved]
  - Fatigue [Unknown]
  - Hypersomnia [Not Recovered/Not Resolved]
  - Off label use [Unknown]

NARRATIVE: CASE EVENT DATE: 20240912
